APPROVED DRUG PRODUCT: IRBESARTAN
Active Ingredient: IRBESARTAN
Strength: 300MG
Dosage Form/Route: TABLET;ORAL
Application: A211056 | Product #003
Applicant: IPCA LABORATORIES LTD
Approved: May 22, 2024 | RLD: No | RS: No | Type: DISCN